FAERS Safety Report 9785827 (Version 2)
Quarter: 2014Q1

REPORT INFORMATION
  Report Type: Spontaneous
  Country: US (occurrence: US)
  Receive Date: 20131227
  Receipt Date: 20140205
  Transmission Date: 20141002
  Serious: Yes (Hospitalization)
  Sender: FDA-Public Use
  Company Number: US-BAYER-2013-157446

PATIENT
  Age: 42 Year
  Sex: Female
  Weight: 77.1 kg

DRUGS (3)
  1. MIRENA [Suspect]
     Indication: CONTRACEPTION
     Dosage: 20 MCG/24HR, CONT
     Route: 015
     Dates: start: 20050620, end: 20130517
  2. CITALOPRAM [Concomitant]
     Indication: ANXIETY
     Dosage: UNK
     Dates: start: 2009
  3. CITALOPRAM [Concomitant]
     Indication: DEPRESSION

REACTIONS (8)
  - Uterine perforation [None]
  - Back pain [None]
  - Injury [None]
  - Pain [None]
  - Emotional distress [None]
  - Anxiety [None]
  - Device misuse [None]
  - Device issue [None]
